FAERS Safety Report 10412413 (Version 1)
Quarter: 2014Q2

REPORT INFORMATION
  Report Type: Spontaneous
  Country: US (occurrence: None)
  Receive Date: 20140604
  Receipt Date: 20140604
  Transmission Date: 20141212
  Serious: Yes (Hospitalization, Other)
  Sender: FDA-Public Use
  Company Number: 20100302CINRY1387

PATIENT
  Age: 42 Year
  Sex: Female
  Weight: 79.38 kg

DRUGS (19)
  1. CINRYZE [Suspect]
     Indication: HEREDITARY ANGIOEDEMA
     Dosage: 3 IN 1 WK
     Route: 058
  2. CINRYZE [Suspect]
     Dosage: 3 IN 1 WK
     Route: 058
  3. ASA (ACETYLSALICYLIC ACID) [Concomitant]
  4. AMITRIPTYLINE (AMITRIPYLINE) [Concomitant]
  5. DANAZOL (DANAZOL) [Concomitant]
  6. DILAUDID (HYDROMORPHONE HYDROCHLORIDE) [Concomitant]
  7. ZOFRAN (ONDANSETRON) [Concomitant]
  8. BENADRYL (DIPHENHYDRAMINE HYDROCHLORIDE) [Concomitant]
  9. DILANTIN (PHENYTOIN) [Concomitant]
  10. FOSAMAX (ALENDRONATE SODIUM) [Concomitant]
  11. PHENERGAN (PROMETHAZINE [Concomitant]
  12. BENTYL (DICYCLOVERINE HYDROCHLORIDE [Concomitant]
  13. NASONEX (MOMETASOINE FUROATE) [Concomitant]
  14. PROMETHAZINE  (PROMETHAZINE) [Concomitant]
  15. ALBUTEROL (SALBUTAMOL) [Concomitant]
  16. SPIRIVA [Concomitant]
  17. OXYCODONE/ACETA (OXYCOCET) [Concomitant]
  18. ATENOLOL (ATENOLOL) [Concomitant]
  19. ASMANEX (MOMETASONE FUROATE) [Concomitant]

REACTIONS (2)
  - Hereditary angioedema [None]
  - Inappropriate schedule of drug administration [None]
